FAERS Safety Report 9920027 (Version 1)
Quarter: 2014Q1

REPORT INFORMATION
  Report Type: Spontaneous
  Country: TR (occurrence: TR)
  Receive Date: 20140224
  Receipt Date: 20140224
  Transmission Date: 20141002
  Serious: Yes (Life-Threatening, Other)
  Sender: FDA-Public Use
  Company Number: TR-ACTAVIS-2014-02738

PATIENT
  Sex: Female
  Weight: 2 kg

DRUGS (3)
  1. MORPHINE (UNKNOWN) [Suspect]
     Indication: DRUG WITHDRAWAL SYNDROME NEONATAL
     Dosage: 0.04 MG/KG, Q4H (0.04 MG/KG/DOSE AS 15-MINUTE INFUSION,4-HOURLY)
     Route: 042
  2. PHENOBARBITAL [Concomitant]
     Indication: DRUG WITHDRAWAL SYNDROME NEONATAL
     Dosage: 20 MG/KG, LOADING DOSE
     Route: 065
  3. PHENOBARBITAL [Concomitant]
     Dosage: 5 MG/KG, DAILY; MAINTENANCE
     Route: 065

REACTIONS (1)
  - Apnoea neonatal [Recovered/Resolved]
